FAERS Safety Report 9303095 (Version 3)
Quarter: 2016Q3

REPORT INFORMATION
  Report Type: Spontaneous
  Country: US (occurrence: US)
  Receive Date: 20130522
  Receipt Date: 20160927
  Transmission Date: 20161109
  Serious: Yes (Death, Hospitalization, Other)
  Sender: FDA-Public Use
  Company Number: US-009507513-1305USA010198

PATIENT
  Sex: Female
  Weight: 61.68 kg

DRUGS (4)
  1. CALCIUM (UNSPECIFIED) [Concomitant]
     Active Substance: CALCIUM
     Indication: PRODUCT USED FOR UNKNOWN INDICATION
     Dosage: UNK, UNKNOWN
     Route: 065
     Dates: start: 2000
  2. OMEGA-3 MARINE TRIGLYCERIDES [Suspect]
     Active Substance: FISH OIL
     Indication: PRODUCT USED FOR UNKNOWN INDICATION
     Dosage: UNK UNK, UNKNOWN
     Route: 065
     Dates: start: 2000
  3. FOSAMAX [Suspect]
     Active Substance: ALENDRONATE SODIUM
     Dosage: UNK UNK, UNKNOWN
     Route: 048
  4. FOSAMAX [Suspect]
     Active Substance: ALENDRONATE SODIUM
     Indication: OSTEOPOROSIS
     Dosage: 70 MG Q WKLY, UNKNOWN
     Route: 048
     Dates: start: 1995, end: 201105

REACTIONS (24)
  - Aortic stenosis [Not Recovered/Not Resolved]
  - Delirium [Recovering/Resolving]
  - Umbilical hernia [Unknown]
  - Hyperlipidaemia [Unknown]
  - Back pain [Unknown]
  - Labyrinthitis [Unknown]
  - Postoperative renal failure [Unknown]
  - Cardiomegaly [Unknown]
  - Arrhythmia [Unknown]
  - Cardiac failure congestive [Fatal]
  - Hypertension [Fatal]
  - Musculoskeletal pain [Recovering/Resolving]
  - Hypertension [Unknown]
  - Hypokalaemia [Unknown]
  - Oedema peripheral [Unknown]
  - Aortic valve incompetence [Unknown]
  - Adverse drug reaction [Unknown]
  - Fatigue [Unknown]
  - Dizziness [Not Recovered/Not Resolved]
  - Anaemia postoperative [Unknown]
  - Aortic stenosis [Not Recovered/Not Resolved]
  - Nausea [Unknown]
  - Femur fracture [Recovered/Resolved]
  - Bradycardia [Unknown]

NARRATIVE: CASE EVENT DATE: 2004
